FAERS Safety Report 7626466-1 (Version None)
Quarter: 2011Q3

REPORT INFORMATION
  Report Type: 
  Country: None (occurrence: None)
  Receive Date: 20110721
  Receipt Date: 20110718
  Transmission Date: 20111222
  Serious: Yes (Other)
  Sender: FDA-Public Use
  Company Number: US-PFIZER INC-2011163338

PATIENT
  Sex: Male
  Weight: 81.633 kg

DRUGS (4)
  1. LIPITOR [Suspect]
     Indication: BLOOD CHOLESTEROL INCREASED
     Dosage: 10 MG, DAILY
     Route: 048
     Dates: start: 20050101
  2. CYCLOSPORINE [Concomitant]
     Indication: DRY EYE
     Dosage: UNK
     Dates: start: 20101101
  3. FLUOCINONIDE [Suspect]
     Dosage: UNK
  4. MONTELUKAST [Concomitant]
     Indication: HYPERSENSITIVITY
     Dosage: 10 MG, DAILY

REACTIONS (3)
  - SUNBURN [None]
  - DRUG INEFFECTIVE [None]
  - RASH [None]
